FAERS Safety Report 18568233 (Version 1)
Quarter: 2020Q4

REPORT INFORMATION
  Report Type: Spontaneous
  Country: US (occurrence: US)
  Receive Date: 20201202
  Receipt Date: 20201202
  Transmission Date: 20210114
  Serious: Yes (Life-Threatening, Hospitalization, Other)
  Sender: FDA-Public Use
  Company Number: US-AXELLIA-003541

PATIENT
  Age: 7 Year
  Sex: Male

DRUGS (3)
  1. PARACETAMOL [Suspect]
     Active Substance: ACETAMINOPHEN
     Indication: PYREXIA
     Dosage: AS NEEDED
     Route: 048
  2. AMPHOTERICIN B/AMPHOTERICIN B/LIPOSOME [Concomitant]
     Active Substance: AMPHOTERICIN B
     Indication: CANDIDA INFECTION
  3. VORICONAZOLE. [Suspect]
     Active Substance: VORICONAZOLE
     Indication: CANDIDA INFECTION

REACTIONS (10)
  - Drug level increased [Unknown]
  - Arrhythmia [Recovering/Resolving]
  - Hepatic function abnormal [Recovered/Resolved]
  - Ventricular tachycardia [Recovering/Resolving]
  - Electrocardiogram QT prolonged [Recovering/Resolving]
  - Coagulopathy [Recovering/Resolving]
  - Cardiac failure [Recovering/Resolving]
  - Metabolic acidosis [Recovering/Resolving]
  - Glutathione synthetase deficiency [Recovering/Resolving]
  - Cardiac failure acute [Recovering/Resolving]
